FAERS Safety Report 14098743 (Version 1)
Quarter: 2017Q4

REPORT INFORMATION
  Report Type: Spontaneous
  Country: NO (occurrence: NO)
  Receive Date: 20171017
  Receipt Date: 20171017
  Transmission Date: 20180321
  Serious: Yes (Other)
  Sender: FDA-Public Use
  Company Number: PHHY2017NO150264

PATIENT
  Age: 51 Year
  Sex: Male

DRUGS (8)
  1. LIPITOR [Suspect]
     Active Substance: ATORVASTATIN CALCIUM
     Indication: ARTERIOSCLEROSIS
     Route: 065
     Dates: start: 2006, end: 2006
  2. LOSARTAN. [Concomitant]
     Active Substance: LOSARTAN
     Indication: HYPERTENSION
     Route: 065
  3. CARDURAN [Concomitant]
     Active Substance: DOXAZOSIN MESYLATE
     Indication: GOUT
     Route: 065
  4. PLAVIX [Concomitant]
     Active Substance: CLOPIDOGREL BISULFATE
     Indication: PROPHYLAXIS
     Route: 065
  5. ADALAT [Concomitant]
     Active Substance: NIFEDIPINE
     Indication: HYPERTENSION
     Route: 005
  6. LIPITOR [Suspect]
     Active Substance: ATORVASTATIN CALCIUM
     Dosage: 40 MG, QD 40 MG, 1X/DAY
     Route: 065
     Dates: start: 2013, end: 20150401
  7. SIMVASTATIN. [Suspect]
     Active Substance: SIMVASTATIN
     Indication: BLOOD CHOLESTEROL INCREASED
     Dosage: FOR A SHORT PERIOD OF TIME
     Route: 065
  8. ALBYL-E [Concomitant]
     Active Substance: ASPIRIN\MAGNESIUM OXIDE
     Indication: PROPHYLAXIS
     Route: 065

REACTIONS (13)
  - Testicular mass [Unknown]
  - Urine output increased [Unknown]
  - Influenza like illness [Unknown]
  - Amnesia [Recovered/Resolved]
  - Muscle contractions involuntary [Unknown]
  - Memory impairment [Unknown]
  - Haemorrhage subcutaneous [Recovered/Resolved]
  - Musculoskeletal stiffness [Unknown]
  - Visual field defect [Unknown]
  - Speech disorder [Unknown]
  - Dyschezia [Unknown]
  - Cerebrovascular accident [Unknown]
  - Erectile dysfunction [Unknown]

NARRATIVE: CASE EVENT DATE: 20060401
